FAERS Safety Report 8173873-7 (Version None)
Quarter: 2012Q1

REPORT INFORMATION
  Report Type: 
  Country: None (occurrence: None)
  Receive Date: 20120224
  Receipt Date: 20120214
  Transmission Date: 20120608
  Serious: Yes (Disabling)
  Sender: FDA-Public Use
  Company Number: 2011AP002333

PATIENT
  Age: 67 Year
  Sex: Female

DRUGS (6)
  1. RAMIPRIL [Suspect]
     Indication: HYPERTENSION
     Dosage: 5 MG, PO, BID
     Route: 048
     Dates: start: 20110407, end: 20111031
  2. ZOPICLONE (ZOPICLONE) [Concomitant]
  3. BACLOFEN [Concomitant]
  4. STRONTIUM RANELATE (STRONTIUM RANELATE) [Concomitant]
  5. ADCAL D3 (LEKOVIT CA) [Concomitant]
  6. INDAPAMIDE [Concomitant]

REACTIONS (4)
  - COUGH [None]
  - ONYCHOMYCOSIS [None]
  - CARDIAC FAILURE [None]
  - NAIL DISORDER [None]
